FAERS Safety Report 7555209-5 (Version None)
Quarter: 2011Q2

REPORT INFORMATION
  Report Type: 
  Country: None (occurrence: None)
  Receive Date: 20110617
  Receipt Date: 20110608
  Transmission Date: 20111010
  Serious: Yes (Hospitalization)
  Sender: FDA-Public Use
  Company Number: PHHY2011US01998

PATIENT
  Sex: Male

DRUGS (6)
  1. RISPERIDONE [Concomitant]
     Indication: ABNORMAL BEHAVIOUR
     Dosage: 0.25 MG, QAM
  2. RISPERIDONE [Concomitant]
     Dosage: 1 MG, QD
  3. SOLU-MEDROL [Concomitant]
     Dosage: 1 G, TID
     Route: 042
  4. PREDNISONE [Concomitant]
     Dosage: 60 MG, QD
     Route: 048
     Dates: start: 20110108
  5. GILENYA [Suspect]
     Indication: RELAPSING-REMITTING MULTIPLE SCLEROSIS
     Dosage: 0.5 MG, QD
     Route: 048
     Dates: start: 20110108, end: 20110108
  6. ZYRTEC [Concomitant]
     Dosage: 10 MG, UNK

REACTIONS (9)
  - DIZZINESS [None]
  - ATRIOVENTRICULAR BLOCK [None]
  - SYNCOPE [None]
  - BRADYCARDIA [None]
  - NAUSEA [None]
  - DRUG EFFECT DELAYED [None]
  - MALAISE [None]
  - CONVULSION [None]
  - CARDIAC ARREST [None]
